FAERS Safety Report 8711460 (Version 2)
Quarter: 2012Q4

REPORT INFORMATION
  Report Type: 
  Country: CO (occurrence: CO)
  Receive Date: 20120807
  Receipt Date: 20120907
  Transmission Date: 20130627
  Serious: Yes (Congenital Anomaly)
  Sender: FDA-Public Use
  Company Number: CO-ROCHE-1095304

PATIENT

DRUGS (1)
  1. ISOTRETINOIN [Suspect]
     Indication: ACNE
     Route: 064

REACTIONS (5)
  - Congenital cranial nerve paralysis [Unknown]
  - Anotia [Unknown]
  - Microtia [Unknown]
  - Heart disease congenital [Unknown]
  - Maternal exposure timing unspecified [Unknown]
